FAERS Safety Report 4273639-4 (Version None)
Quarter: 2004Q1

REPORT INFORMATION
  Report Type: 
  Country: None (occurrence: None)
  Receive Date: 20040119
  Receipt Date: 20031125
  Transmission Date: 20041129
  Serious: Yes (Hospitalization)
  Sender: FDA-Public Use
  Company Number: WAES 0311USA02861

PATIENT
  Age: 42 Year
  Sex: Female

DRUGS (7)
  1. LORTAB [Concomitant]
  2. ASPIRIN [Concomitant]
  3. BACLOFEN [Concomitant]
  4. VALIUM [Concomitant]
  5. VASOTEC [Concomitant]
     Route: 048
  6. GLUCOTROL XL [Concomitant]
  7. VIOXX [Suspect]
     Route: 048
     Dates: start: 20030501, end: 20031016

REACTIONS (3)
  - BACK PAIN [None]
  - CONVULSION [None]
  - HAEMATOCHEZIA [None]
